FAERS Safety Report 8564976-3 (Version None)
Quarter: 2012Q3

REPORT INFORMATION
  Report Type: 
  Country: None (occurrence: None)
  Receive Date: 20120803
  Receipt Date: 20120723
  Transmission Date: 20120928
  Serious: Yes (Hospitalization)
  Sender: FDA-Public Use
  Company Number: JP-ROCHE-1083926

PATIENT
  Sex: Female

DRUGS (9)
  1. SELBEX [Concomitant]
     Indication: GASTRITIS PROPHYLAXIS
     Route: 048
  2. RHEUMATREX [Concomitant]
     Indication: RHEUMATOID ARTHRITIS
     Route: 048
  3. INDOMETHACIN [Concomitant]
     Indication: RHEUMATOID ARTHRITIS
     Route: 048
  4. PREDNISOLONE [Concomitant]
     Route: 048
  5. BLOPRESS [Concomitant]
     Indication: PROPHYLAXIS
     Route: 048
  6. ACTEMRA [Suspect]
     Indication: RHEUMATOID ARTHRITIS
     Route: 041
     Dates: start: 20090430
  7. FOLIC ACID [Concomitant]
     Route: 048
  8. AMLODIPINE [Concomitant]
     Indication: HYPERTENSION
     Route: 048
  9. LANSOPRAZOLE [Concomitant]
     Indication: GASTRITIS PROPHYLAXIS
     Route: 048

REACTIONS (2)
  - FEMUR FRACTURE [None]
  - FALL [None]
